FAERS Safety Report 5364626-3 (Version None)
Quarter: 2007Q2

REPORT INFORMATION
  Report Type: 
  Country: None (occurrence: None)
  Receive Date: 20070530
  Receipt Date: 20070122
  Transmission Date: 20071010
  Serious: No
  Sender: FDA-Public Use
  Company Number: 2007PV028778

PATIENT
  Age: 64 Year
  Sex: Female
  Weight: 86.1834 kg

DRUGS (4)
  1. BYETTA [Suspect]
     Indication: DIABETES MELLITUS NON-INSULIN-DEPENDENT
     Dosage: 10 MCG;BD;SC;5 MCG;BID;SC
     Route: 058
     Dates: start: 20070113, end: 20070201
  2. BYETTA [Suspect]
     Indication: DIABETES MELLITUS NON-INSULIN-DEPENDENT
     Dosage: 10 MCG;BD;SC;5 MCG;BID;SC
     Route: 058
     Dates: start: 20070212
  3. BYETTA [Suspect]
  4. GLYBURIDE AND METFORMIN HCL [Concomitant]

REACTIONS (5)
  - BLOOD GLUCOSE INCREASED [None]
  - INJECTION SITE BRUISING [None]
  - INJECTION SITE HAEMORRHAGE [None]
  - INJECTION SITE PAIN [None]
  - NAUSEA [None]
